FAERS Safety Report 9055802 (Version 3)
Quarter: 2013Q2

REPORT INFORMATION
  Report Type: Report from Study
  Country: US (occurrence: US)
  Receive Date: 20130206
  Receipt Date: 20130422
  Transmission Date: 20140414
  Serious: Yes (Hospitalization)
  Sender: FDA-Public Use
  Company Number: US-B.I. PHARMACEUTICALS,INC./RIDGEFIELD-2013-BI-02731BI

PATIENT
  Age: 62 Year
  Sex: Male

DRUGS (7)
  1. TIOTROPIUM BROMIDE [Suspect]
     Indication: CHRONIC OBSTRUCTIVE PULMONARY DISEASE
     Dosage: 2.5 MCG
     Route: 055
  2. TIOTROPIUM BROMIDE [Suspect]
     Indication: CHRONIC OBSTRUCTIVE PULMONARY DISEASE
     Dosage: 18 MCG
     Route: 055
     Dates: start: 20100602, end: 20130129
  3. AMOXIL [Concomitant]
     Indication: SINUSITIS
     Route: 048
  4. MUCINEX [Concomitant]
     Indication: SINUSITIS
     Route: 048
     Dates: start: 2010
  5. VITAMIN D [Concomitant]
     Indication: VITAMIN D DEFICIENCY
     Dosage: 5000 U
     Route: 048
     Dates: start: 201205
  6. WARFARIN [Concomitant]
     Indication: ATRIAL FIBRILLATION
     Dates: start: 2004
  7. SYMBICORT [Concomitant]
     Indication: CHRONIC OBSTRUCTIVE PULMONARY DISEASE
     Route: 055
     Dates: start: 201001

REACTIONS (1)
  - Pneumothorax spontaneous [Recovered/Resolved]
